FAERS Safety Report 12120910 (Version 1)
Quarter: 2016Q1

REPORT INFORMATION
  Report Type: Spontaneous
  Country: US (occurrence: US)
  Receive Date: 20160226
  Receipt Date: 20160226
  Transmission Date: 20160526
  Serious: No
  Sender: FDA-Public Use
  Company Number: US-ALLERGAN-1204460US

PATIENT
  Age: 87 Year
  Sex: Female

DRUGS (2)
  1. REFRESH OPTIVE [Suspect]
     Active Substance: CARBOXYMETHYLCELLULOSE SODIUM\GLYCERIN
     Indication: DRY EYE
     Dosage: 1-2 GTTS TO EACH EYE AS NEED DAILY
     Route: 047
  2. UNK EYE DROP [Concomitant]
     Indication: MACULAR DEGENERATION
     Dosage: UNK
     Route: 047

REACTIONS (2)
  - Eye irritation [Unknown]
  - Ocular hyperaemia [Not Recovered/Not Resolved]
